FAERS Safety Report 22398577 (Version 1)
Quarter: 2023Q2

REPORT INFORMATION
  Report Type: Spontaneous
  Country: IE (occurrence: IE)
  Receive Date: 20230602
  Receipt Date: 20230602
  Transmission Date: 20230722
  Serious: Yes (Life-Threatening, Hospitalization, Other)
  Sender: FDA-Public Use
  Company Number: IE-AJANTA-2023AJA00109

PATIENT
  Age: 37 Year
  Sex: Female

DRUGS (2)
  1. CLOMIPRAMINE [Suspect]
     Active Substance: CLOMIPRAMINE
     Indication: Product used for unknown indication
     Dosage: SUSTAINED-RELEASE
     Route: 048
  2. LAMOTRIGINE [Suspect]
     Active Substance: LAMOTRIGINE
     Indication: Product used for unknown indication
     Route: 048

REACTIONS (12)
  - Intentional overdose [Unknown]
  - Respiratory acidosis [Unknown]
  - Electrocardiogram QT prolonged [Unknown]
  - Lactic acidosis [Unknown]
  - Bezoar [Unknown]
  - Seizure anoxic [Unknown]
  - Clonus [Not Recovered/Not Resolved]
  - Tonic clonic movements [Unknown]
  - Depressed level of consciousness [Unknown]
  - Mydriasis [Unknown]
  - Tachycardia [Unknown]
  - Myoclonus [Unknown]
